FAERS Safety Report 14276981 (Version 1)
Quarter: 2017Q4

REPORT INFORMATION
  Report Type: Spontaneous
  Country: US (occurrence: US)
  Receive Date: 20171212
  Receipt Date: 20171212
  Transmission Date: 20180321
  Serious: Yes (Death, Hospitalization)
  Sender: FDA-Public Use
  Company Number: US-JNJFOC-20171203325

PATIENT
  Age: 50 Year
  Sex: Female

DRUGS (8)
  1. HYDROXYZINE [Suspect]
     Active Substance: HYDROXYZINE HYDROCHLORIDE
     Indication: SUICIDE ATTEMPT
     Route: 048
  2. IBUPROFEN. [Suspect]
     Active Substance: IBUPROFEN
     Route: 048
  3. METHOCARBAMOL. [Suspect]
     Active Substance: METHOCARBAMOL
     Indication: SUICIDE ATTEMPT
     Route: 048
  4. HYDROMORPHONE [Suspect]
     Active Substance: HYDROMORPHONE
     Indication: SUICIDE ATTEMPT
     Route: 048
  5. ROSUVASTATIN. [Suspect]
     Active Substance: ROSUVASTATIN
     Indication: SUICIDE ATTEMPT
     Route: 048
  6. IBUPROFEN. [Suspect]
     Active Substance: IBUPROFEN
     Indication: SUICIDE ATTEMPT
     Route: 048
  7. BACLOFEN. [Suspect]
     Active Substance: BACLOFEN
     Indication: SUICIDE ATTEMPT
     Route: 048
  8. GABAPENTIN. [Suspect]
     Active Substance: GABAPENTIN
     Indication: SUICIDE ATTEMPT
     Route: 048

REACTIONS (1)
  - Toxicity to various agents [Fatal]
